FAERS Safety Report 20150841 (Version 3)
Quarter: 2022Q1

REPORT INFORMATION
  Report Type: Spontaneous
  Country: US (occurrence: US)
  Receive Date: 20211206
  Receipt Date: 20220217
  Transmission Date: 20220424
  Serious: Yes (Hospitalization, Other)
  Sender: FDA-Public Use
  Company Number: US-GLENMARK PHARMACEUTICALS-2021GMK069118

PATIENT
  Age: 29 Year
  Sex: Female

DRUGS (7)
  1. LIDOCAINE [Suspect]
     Active Substance: LIDOCAINE
     Indication: Ewing^s sarcoma metastatic
     Dosage: FORMULATION: INFUSION, LOADING DOSE OF 2 MG/KG
     Route: 042
  2. LIDOCAINE [Suspect]
     Active Substance: LIDOCAINE
     Indication: Cancer pain
     Dosage: FORMULATION: INFUSION, 1 MILLIGRAM PER KILOGRAM EVERY 1 HOUR (ON HOSPITAL DAY 17)
     Route: 042
  3. LIDOCAINE [Suspect]
     Active Substance: LIDOCAINE
     Dosage: FORMULATION: INFUSION, 1.6 MILLIGRAM PER KILOGRAM/HOUR EVERY 1 HOUR (TITRATED TO A MAXIMUMOF 1.6MG/K
     Route: 042
  4. LIDOCAINE [Suspect]
     Active Substance: LIDOCAINE
     Dosage: FORMULATION: INFUSION, 1 MILLIGRAM PER KILOGRAM EVERY 1 HOUR A CONTINUOUS INFUSION
     Route: 042
  5. DEXAMETHASONE [Suspect]
     Active Substance: DEXAMETHASONE
     Indication: Analgesic therapy
     Dosage: 10 MILLIGRAM EVERY EIGHT HOURS (ON HD 25, DEXAMETHASONE WAS INCREASED TO 10 MG IV Q8 HOURS)
     Route: 042
  6. DEXAMETHASONE [Suspect]
     Active Substance: DEXAMETHASONE
     Indication: Spinal cord compression
     Dosage: 10 MILLIGRAM EVERY 24 HOURS (EVERY MORNING WAS STARTED ON HD 20)
     Route: 042
  7. ACETAMINOPHEN [Concomitant]
     Active Substance: ACETAMINOPHEN
     Indication: Analgesic therapy
     Dosage: 1000 MILLIGRAM,Q8 HOURS (TID)
     Route: 048

REACTIONS (5)
  - Hoigne^s syndrome [Recovering/Resolving]
  - Delirium [Recovering/Resolving]
  - Hypoaesthesia oral [Recovering/Resolving]
  - Anxiety [Recovering/Resolving]
  - Drug level increased [Recovered/Resolved]
